FAERS Safety Report 10174575 (Version 1)
Quarter: 2014Q2

REPORT INFORMATION
  Report Type: Spontaneous
  Country: US (occurrence: None)
  Receive Date: 20140416
  Receipt Date: 20140416
  Transmission Date: 20141212
  Serious: Yes (Other)
  Sender: FDA-Public Use
  Company Number: 163-POMAL-13092993

PATIENT
  Age: 79 Year
  Sex: Male
  Weight: 105.24 kg

DRUGS (13)
  1. POMALYST [Suspect]
     Indication: PLASMA CELL MYELOMA
     Dosage: 4 MG, 21 IN 28 D, PO
     Route: 048
     Dates: start: 201307
  2. ANDROGEL (TESTOSTERONE) (UNKNOWN) [Concomitant]
  3. ZOLPIDEM (ZOLPIDEM) (UNKNOWN) [Concomitant]
  4. ASPIRIN (UNKNOWN) [Concomitant]
  5. PLAVIX (CLOPIDOGREL SULFATE) (UNKNOWN) [Concomitant]
  6. TRAZODONE (TRAZODONE) (UNKNOWN) [Concomitant]
  7. LISINOPRIL (LISINOPRIL) (UNKNOWN) [Concomitant]
  8. ACTOS (UNKNOWN) [Concomitant]
  9. LOVASTATIN (LOVASTATIN) (UNKNOWN) [Concomitant]
  10. LEVOTHYROXINE (LEVOTHYROXINE) (UNKNOWN) [Concomitant]
  11. MULTIPLE HERBAL MEDICATIONS (UNKNOWN) [Concomitant]
  12. IMODIUM (UNKNOWN) [Concomitant]
  13. ALLOPURINOL (ALLOPURINOL) (UNKNOWN) [Concomitant]

REACTIONS (5)
  - Anaemia [None]
  - Depression [None]
  - Hyperhidrosis [None]
  - Hot flush [None]
  - Fatigue [None]
